FAERS Safety Report 8484379-X (Version None)
Quarter: 2012Q3

REPORT INFORMATION
  Report Type: 
  Country: None (occurrence: None)
  Receive Date: 20120703
  Receipt Date: 20120627
  Transmission Date: 20120928
  Serious: Yes (Other)
  Sender: FDA-Public Use
  Company Number: PHHY2012BR056084

PATIENT
  Sex: Female

DRUGS (2)
  1. FORADIL [Suspect]
     Indication: ASTHMA
     Dosage: 1 TABLET IN THE MORNING AND 1 TABLET AT NIGHT
  2. FORMOTEROL FUMARATE [Suspect]
     Indication: ASTHMA
     Dosage: 1 TABLET IN THE MORNING AND 1 TABLET AT NIGHT

REACTIONS (3)
  - CATARACT [None]
  - WHEEZING [None]
  - VISUAL IMPAIRMENT [None]
